FAERS Safety Report 20853489 (Version 1)
Quarter: 2022Q2

REPORT INFORMATION
  Report Type: Spontaneous
  Country: CN (occurrence: CN)
  Receive Date: 20220520
  Receipt Date: 20220520
  Transmission Date: 20220721
  Serious: Yes (Hospitalization)
  Sender: FDA-Public Use
  Company Number: CN-PFIZER INC-202200696399

PATIENT
  Age: 37 Year
  Sex: Female
  Weight: 58 kg

DRUGS (1)
  1. CEFOBID [Suspect]
     Active Substance: CEFOPERAZONE
     Indication: Appendicitis perforated
     Dosage: 2 G, 2X/DAY
     Route: 041
     Dates: start: 20211221, end: 20220221

REACTIONS (4)
  - Rash [Recovering/Resolving]
  - Face oedema [Recovering/Resolving]
  - Heart rate increased [Recovering/Resolving]
  - Drug hypersensitivity [Recovering/Resolving]

NARRATIVE: CASE EVENT DATE: 20211221
